FAERS Safety Report 8279898-5 (Version None)
Quarter: 2012Q2

REPORT INFORMATION
  Report Type: 
  Country: None (occurrence: None)
  Receive Date: 20120412
  Receipt Date: 20120119
  Transmission Date: 20120825
  Serious: No
  Sender: FDA-Public Use
  Company Number: US-ASTRAZENECA-2012SE03957

PATIENT
  Age: 66 Year
  Sex: Female
  Weight: 70.3 kg

DRUGS (5)
  1. CRESTOR [Suspect]
     Indication: LOW DENSITY LIPOPROTEIN INCREASED
     Route: 048
  2. LIPITOR [Concomitant]
  3. NEXIUM [Suspect]
     Route: 048
  4. FLUOXETINE [Concomitant]
  5. FENOFIBRATE [Concomitant]

REACTIONS (3)
  - HYPOAESTHESIA [None]
  - URINE ABNORMALITY [None]
  - PARAESTHESIA [None]
